FAERS Safety Report 15482014 (Version 1)
Quarter: 2018Q4

REPORT INFORMATION
  Report Type: Spontaneous
  Country: US (occurrence: US)
  Receive Date: 20181003
  Receipt Date: 20181003
  Transmission Date: 20190205
  Serious: Yes (Hospitalization)
  Sender: FDA-Public Use
  Company Number: None

PATIENT
  Age: 17 Year
  Sex: Female
  Weight: 64 kg

DRUGS (5)
  1. ERWINIA ASPARAGINASE [Suspect]
     Active Substance: ASPARAGINASE ERWINIA CHRYSANTHEMI
     Dates: end: 20180929
  2. VINCRISTINE [Concomitant]
     Active Substance: VINCRISTINE
  3. DEXAMETHASONE. [Suspect]
     Active Substance: DEXAMETHASONE
     Dates: end: 20180908
  4. METHOTREXATE 30 MG [Suspect]
     Active Substance: METHOTREXATE
  5. MITOXANTRONE 34 MG [Suspect]
     Active Substance: MITOXANTRONE HYDROCHLORIDE

REACTIONS (11)
  - Hyperammonaemia [None]
  - Hypotension [None]
  - Pyrexia [None]
  - Sepsis [None]
  - Posterior reversible encephalopathy syndrome [None]
  - Neutrophil count decreased [None]
  - Neutropenia [None]
  - Generalised tonic-clonic seizure [None]
  - Hypophagia [None]
  - Shock [None]
  - Mucosal inflammation [None]

NARRATIVE: CASE EVENT DATE: 20180915
